FAERS Safety Report 5092453-3 (Version None)
Quarter: 2006Q3

REPORT INFORMATION
  Report Type: 
  Country: None (occurrence: None)
  Receive Date: 20060825
  Receipt Date: 20060815
  Transmission Date: 20061208
  Serious: Yes (Other)
  Sender: FDA-Public Use
  Company Number: 2006098964

PATIENT
  Age: 68 Year
  Sex: Female
  Weight: 50.8029 kg

DRUGS (9)
  1. LINEZOLID [Suspect]
     Indication: STAPHYLOCOCCAL INFECTION
     Dosage: 600 MG (600 MG, 1 IN 1 D), ORAL
     Route: 048
     Dates: start: 20060807
  2. SPIRIVA [Concomitant]
  3. PULMICORT [Concomitant]
  4. ZOCOR [Concomitant]
  5. BATAPACE (ALL OTHER THERAPEUTIC PRODUCTS) [Concomitant]
  6. COUMADIN [Concomitant]
  7. CYTOMEL [Concomitant]
  8. SYNTHROID [Concomitant]
  9. COSOPC EYE DROP (DORZOLAMIDE HYDROCHLORIDE, TIMOLOL MALEATE) [Concomitant]

REACTIONS (3)
  - BODY TEMPERATURE INCREASED [None]
  - DECREASED APPETITE [None]
  - MUSCULOSKELETAL DISORDER [None]
